FAERS Safety Report 7893617-3 (Version None)
Quarter: 2011Q4

REPORT INFORMATION
  Report Type: 
  Country: None (occurrence: None)
  Receive Date: 20111104
  Receipt Date: 20100728
  Transmission Date: 20120403
  Serious: Yes (Hospitalization, Disabling)
  Sender: FDA-Public Use
  Company Number: JP-GLAXOSMITHKLINE-B0667762A

PATIENT
  Sex: Female
  Weight: 49 kg

DRUGS (15)
  1. UNKNOWN DRUG [Concomitant]
     Indication: PAIN
     Route: 048
     Dates: start: 20091119, end: 20100723
  2. MUCOSTA [Concomitant]
     Indication: DECREASED APPETITE
     Route: 048
     Dates: start: 20091210, end: 20100723
  3. PROTECADIN [Concomitant]
     Indication: DECREASED APPETITE
     Route: 048
     Dates: start: 20100218, end: 20100723
  4. MOBIC [Concomitant]
     Indication: PAIN
     Route: 048
     Dates: start: 20100430, end: 20100723
  5. UREPEARL [Concomitant]
     Indication: PALMAR-PLANTAR ERYTHRODYSAESTHESIA SYNDROME
     Route: 061
     Dates: start: 20090219, end: 20100723
  6. XELODA [Concomitant]
     Dosage: 2400MG PER DAY
     Route: 048
     Dates: start: 20100408, end: 20100602
  7. CODEINE PHOSPHATE [Concomitant]
     Indication: COUGH
     Route: 048
     Dates: start: 20090402, end: 20100723
  8. PYDOXAL [Concomitant]
     Indication: STOMATITIS
     Route: 048
     Dates: start: 20090219, end: 20100723
  9. PROGESTERONE [Concomitant]
     Indication: BREAST CANCER
     Dosage: 600MG PER DAY
     Route: 048
     Dates: start: 20100527, end: 20100723
  10. OXINORM [Concomitant]
     Indication: PAIN
     Route: 048
     Dates: start: 20091119, end: 20100723
  11. MAGNESIUM SULFATE [Concomitant]
     Indication: CONSTIPATION
     Route: 048
     Dates: start: 20091119, end: 20100723
  12. ALPRAZOLAM [Concomitant]
     Indication: DYSPNOEA
     Route: 048
     Dates: start: 20100423, end: 20100723
  13. DEPAS [Concomitant]
     Indication: DYSPNOEA
     Route: 048
     Dates: start: 20100527, end: 20100723
  14. MORPHINE HCL ELIXIR [Concomitant]
     Indication: PAIN
     Route: 048
     Dates: start: 20100527, end: 20100723
  15. TYKERB [Suspect]
     Indication: BREAST CANCER
     Dosage: 1250MG PER DAY
     Route: 048
     Dates: start: 20100408, end: 20100603

REACTIONS (5)
  - JAUNDICE [None]
  - HYPERCALCAEMIA [None]
  - BLOOD BILIRUBIN INCREASED [None]
  - DYSPNOEA [None]
  - SUPERIOR VENA CAVA SYNDROME [None]
